FAERS Safety Report 10703271 (Version 1)
Quarter: 2015Q1

REPORT INFORMATION
  Report Type: Spontaneous
  Country: US (occurrence: US)
  Receive Date: 20150112
  Receipt Date: 20150112
  Transmission Date: 20150721
  Serious: Yes (Other)
  Sender: FDA-Public Use
  Company Number: US-ROCHE-1516795

PATIENT
  Age: 15 Year
  Sex: Female

DRUGS (1)
  1. TAMIFLU [Suspect]
     Active Substance: OSELTAMIVIR PHOSPHATE
     Indication: INFLUENZA
     Dosage: ONLY TOOK FOR ONE DAY
     Route: 048
     Dates: start: 201412, end: 201412

REACTIONS (6)
  - Chest discomfort [Unknown]
  - Abdominal pain upper [Unknown]
  - Palpitations [Unknown]
  - Vomiting [Unknown]
  - Dysphagia [Not Recovered/Not Resolved]
  - Painful respiration [Unknown]

NARRATIVE: CASE EVENT DATE: 201412
